FAERS Safety Report 10026144 (Version 1)
Quarter: 2014Q1

REPORT INFORMATION
  Report Type: Spontaneous
  Country: US (occurrence: US)
  Receive Date: 20140320
  Receipt Date: 20140320
  Transmission Date: 20141002
  Serious: No
  Sender: FDA-Public Use
  Company Number: US-ALLERGAN-1319179US

PATIENT
  Sex: Female

DRUGS (4)
  1. LUMIGAN 0.01% [Suspect]
     Indication: GLAUCOMA
     Dosage: UNK
     Route: 047
     Dates: start: 201310
  2. BRIMONIDINE TARTRATE, 0.2% [Suspect]
     Indication: GLAUCOMA
  3. CITALOPRAM [Concomitant]
     Indication: DEPRESSION
  4. CITALOPRAM [Concomitant]
     Indication: ANXIETY

REACTIONS (7)
  - Growth of eyelashes [Not Recovered/Not Resolved]
  - Vision blurred [Not Recovered/Not Resolved]
  - Eyelash hyperpigmentation [Not Recovered/Not Resolved]
  - Inappropriate schedule of drug administration [Unknown]
  - Pruritus [Not Recovered/Not Resolved]
  - Foreign body sensation in eyes [Not Recovered/Not Resolved]
  - Visual acuity reduced [Not Recovered/Not Resolved]
